FAERS Safety Report 9668758 (Version 2)
Quarter: 2013Q4

REPORT INFORMATION
  Report Type: Spontaneous
  Country: US (occurrence: US)
  Receive Date: 20131105
  Receipt Date: 20131206
  Transmission Date: 20140711
  Serious: Yes (Hospitalization, Other)
  Sender: FDA-Public Use
  Company Number: US-BAYER-2013-130767

PATIENT
  Age: 33 Year
  Sex: Female
  Weight: 58.96 kg

DRUGS (1)
  1. MIRENA [Suspect]
     Indication: CONTRACEPTION
     Dosage: 20 MCG/24HR, CONT
     Route: 015
     Dates: start: 200909, end: 20130403

REACTIONS (11)
  - Uterine perforation [None]
  - Pregnancy with contraceptive device [None]
  - Abortion spontaneous [None]
  - Drug ineffective [None]
  - Device issue [None]
  - Uterine fibrosis [None]
  - Emotional distress [None]
  - Injury [None]
  - Pain [None]
  - Anxiety [None]
  - Device misuse [None]
